FAERS Safety Report 25593129 (Version 1)
Quarter: 2025Q3

REPORT INFORMATION
  Report Type: Spontaneous
  Country: EU (occurrence: EU)
  Receive Date: 20250722
  Receipt Date: 20250722
  Transmission Date: 20251020
  Serious: Yes (Disabling)
  Sender: MYLAN
  Company Number: None

PATIENT
  Age: 42 Year
  Sex: Male
  Weight: 128 kg

DRUGS (4)
  1. TOLTERODINE [Suspect]
     Active Substance: TOLTERODINE
     Indication: Incontinence
     Dates: start: 20250331, end: 20250402
  2. TOLTERODINE [Suspect]
     Active Substance: TOLTERODINE
     Route: 065
     Dates: start: 20250331, end: 20250402
  3. TOLTERODINE [Suspect]
     Active Substance: TOLTERODINE
     Route: 065
     Dates: start: 20250331, end: 20250402
  4. TOLTERODINE [Suspect]
     Active Substance: TOLTERODINE
     Dates: start: 20250331, end: 20250402

REACTIONS (2)
  - Diarrhoea haemorrhagic [Recovered/Resolved]
  - Dizziness [Recovering/Resolving]

NARRATIVE: CASE EVENT DATE: 20250331
